FAERS Safety Report 9278209 (Version 2)
Quarter: 2013Q2

REPORT INFORMATION
  Report Type: Spontaneous
  Country: US (occurrence: US)
  Receive Date: 20130508
  Receipt Date: 20130607
  Transmission Date: 20140414
  Serious: No
  Sender: FDA-Public Use
  Company Number: US-ELI_LILLY_AND_COMPANY-US201305000919

PATIENT
  Sex: Female
  Weight: 53.52 kg

DRUGS (9)
  1. CYMBALTA [Suspect]
     Indication: MIGRAINE
     Dosage: 60 MG, QD
     Route: 048
     Dates: start: 201205
  2. LOVENOX [Concomitant]
     Dosage: UNK, UNKNOWN
     Route: 065
  3. SYNTHROID [Concomitant]
     Indication: HORMONE REPLACEMENT THERAPY
     Dosage: UNK, QD
     Route: 065
  4. CYTOMEL [Concomitant]
     Indication: HORMONE REPLACEMENT THERAPY
     Dosage: UNK, QOD
     Route: 065
  5. NORCO [Concomitant]
     Indication: BACK DISORDER
     Dosage: UNK, PRN
     Route: 065
  6. FOLIC ACID [Concomitant]
     Indication: METHYLENETETRAHYDROFOLATE REDUCTASE DEFICIENCY
     Dosage: UNK, QD
     Route: 065
  7. A.S.A. [Concomitant]
     Dosage: UNK, QD
     Route: 065
  8. PNV [Concomitant]
     Dosage: UNK, UNKNOWN
     Route: 065
  9. DHA [Concomitant]
     Dosage: UNK, UNKNOWN
     Route: 065

REACTIONS (1)
  - Off label use [Unknown]
